FAERS Safety Report 20625767 (Version 1)
Quarter: 2022Q1

REPORT INFORMATION
  Report Type: Spontaneous
  Country: US (occurrence: None)
  Receive Date: 20220323
  Receipt Date: 20220323
  Transmission Date: 20220423
  Serious: No
  Sender: FDA-Public Use
  Company Number: US-ROCHE-2889064

PATIENT
  Sex: Male

DRUGS (16)
  1. ERIVEDGE [Suspect]
     Active Substance: VISMODEGIB
     Indication: Basal cell carcinoma
     Dosage: TAKE ONE CAPSULE BY MOUTH DAILY, SWALLOW WHOLE, DO NOT OPEN CAPSULE
     Route: 048
     Dates: start: 20210108
  2. AMLODIPINE [Concomitant]
     Active Substance: AMLODIPINE BESYLATE
  3. ATORVASTATIN [Concomitant]
     Active Substance: ATORVASTATIN
  4. CINNAMON\HERBALS [Concomitant]
     Active Substance: CINNAMON\HERBALS
  5. CLOVE OIL [Concomitant]
     Active Substance: CLOVE OIL
  6. EUCALYPTUS OIL [Concomitant]
     Active Substance: EUCALYPTUS OIL
  7. FINASTERIDE [Concomitant]
     Active Substance: FINASTERIDE
  8. FISH OIL [Concomitant]
     Active Substance: FISH OIL
  9. LABETALOL HYDROCHLORIDE [Concomitant]
     Active Substance: LABETALOL HYDROCHLORIDE
  10. LEVOTHYROXINE [Concomitant]
     Active Substance: LEVOTHYROXINE
  11. LISINOPRIL [Concomitant]
     Active Substance: LISINOPRIL
  12. OLOPATADINE [Concomitant]
     Active Substance: OLOPATADINE
  13. ROSEMARY OIL [Concomitant]
     Active Substance: ROSEMARY OIL
  14. TAMSULOSIN [Concomitant]
     Active Substance: TAMSULOSIN
  15. TRIAMTERENE [Concomitant]
     Active Substance: TRIAMTERENE
     Dosage: 37.5-25M
  16. VITAMIN C [Concomitant]
     Active Substance: ASCORBIC ACID

REACTIONS (1)
  - Diarrhoea [Not Recovered/Not Resolved]
